FAERS Safety Report 7236897-X (Version None)
Quarter: 2011Q1

REPORT INFORMATION
  Report Type: 
  Country: None (occurrence: None)
  Receive Date: 20110120
  Receipt Date: 20110110
  Transmission Date: 20110831
  Serious: Yes (Death)
  Sender: FDA-Public Use
  Company Number: US-BAYER-2011-003063

PATIENT
  Sex: Male

DRUGS (10)
  1. MAGNEVIST [Suspect]
     Indication: ANGIOGRAM
  2. OPTIMARK [Suspect]
     Indication: NUCLEAR MAGNETIC RESONANCE IMAGING
  3. OMNISCAN [Suspect]
     Indication: ANGIOGRAM
  4. MULTIHANCE [Suspect]
     Indication: NUCLEAR MAGNETIC RESONANCE IMAGING
  5. MAGNEVIST [Suspect]
     Indication: NUCLEAR MAGNETIC RESONANCE IMAGING
  6. OMNISCAN [Suspect]
     Indication: NUCLEAR MAGNETIC RESONANCE IMAGING
  7. OPTIMARK [Suspect]
     Indication: ANGIOGRAM
  8. MULTIHANCE [Suspect]
     Indication: ANGIOGRAM
  9. PROHANCE [Suspect]
     Indication: NUCLEAR MAGNETIC RESONANCE IMAGING
  10. PROHANCE [Suspect]
     Indication: ANGIOGRAM

REACTIONS (2)
  - NEPHROGENIC SYSTEMIC FIBROSIS [None]
  - PAIN [None]
